FAERS Safety Report 12037903 (Version 1)
Quarter: 2016Q1

REPORT INFORMATION
  Report Type: Spontaneous
  Country: US (occurrence: None)
  Receive Date: 20160205
  Receipt Date: 20160205
  Transmission Date: 20160526
  Serious: No
  Sender: FDA-Public Use
  Company Number: None

PATIENT
  Age: 57 Year
  Sex: Female

DRUGS (1)
  1. TRUVIO [Suspect]
     Active Substance: UNSPECIFIED INGREDIENT
     Dosage: 30 UNITS

REACTIONS (1)
  - Injection site discomfort [None]
